FAERS Safety Report 4749976-3 (Version None)
Quarter: 2005Q3

REPORT INFORMATION
  Report Type: 
  Country: None (occurrence: None)
  Receive Date: 20050822
  Receipt Date: 20050408
  Transmission Date: 20060218
  Serious: Yes (Hospitalization, Disabling)
  Sender: FDA-Public Use
  Company Number: US-MERCK-0504USA01269

PATIENT
  Age: 51 Year
  Sex: Male
  Weight: 109 kg

DRUGS (21)
  1. ACETAMINOPHEN AND OXYCODONE HYDROCHLORIDE [Concomitant]
     Route: 065
     Dates: start: 20000628, end: 20050501
  2. VIOXX [Suspect]
     Indication: OSTEOARTHRITIS
     Route: 048
     Dates: start: 20000607, end: 20030101
  3. OXYCONTIN [Concomitant]
     Route: 065
     Dates: start: 20000908, end: 20030801
  4. NEURONTIN [Concomitant]
     Route: 048
     Dates: start: 19990812, end: 20050401
  5. ROXICET [Concomitant]
     Route: 065
     Dates: start: 19981016, end: 20030601
  6. LOTENSIN [Concomitant]
     Route: 065
  7. HYDROCHLOROTHIAZIDE [Concomitant]
     Route: 048
     Dates: start: 19990401
  8. WELLBUTRIN [Concomitant]
     Route: 065
  9. RANITIDINE [Concomitant]
     Route: 065
  10. NEXIUM [Concomitant]
     Route: 065
  11. LOTREL [Concomitant]
     Route: 048
  12. AUGMENTIN '125' [Concomitant]
     Route: 065
  13. TYLOX [Concomitant]
     Route: 065
     Dates: start: 20000601, end: 20010701
  14. PERCOCET [Concomitant]
     Route: 065
     Dates: start: 20020301, end: 20030701
  15. NORTRIPTYLINE [Concomitant]
     Route: 048
  16. PREDNISONE [Concomitant]
     Route: 065
  17. TAMOXIFEN CITRATE [Concomitant]
     Route: 048
  18. PREVACID [Concomitant]
     Route: 048
  19. NORVASC [Concomitant]
     Route: 065
     Dates: start: 20000801, end: 20010901
  20. NORVASC [Concomitant]
     Route: 065
     Dates: start: 20030201, end: 20030401
  21. VIOXX [Suspect]
     Indication: BACK PAIN
     Route: 048
     Dates: start: 20000607, end: 20030101

REACTIONS (21)
  - ABDOMINAL PAIN UPPER [None]
  - ACUTE MYOCARDIAL INFARCTION [None]
  - ANHEDONIA [None]
  - BLOOD CHOLESTEROL INCREASED [None]
  - BREAST MASS [None]
  - CHEST DISCOMFORT [None]
  - CORONARY ARTERY DISEASE [None]
  - CORONARY ARTERY RESTENOSIS [None]
  - CORONARY ARTERY STENOSIS [None]
  - CORONARY ARTERY THROMBOSIS [None]
  - DYSPEPSIA [None]
  - HYPERTENSION [None]
  - HYPONATRAEMIA [None]
  - ILEUS [None]
  - IMPLANT SITE REACTION [None]
  - OBESITY [None]
  - OEDEMA PERIPHERAL [None]
  - PAIN [None]
  - SINUS TACHYCARDIA [None]
  - VENTRICULAR DYSFUNCTION [None]
  - VENTRICULAR EXTRASYSTOLES [None]
